FAERS Safety Report 20925243 (Version 7)
Quarter: 2023Q2

REPORT INFORMATION
  Report Type: Spontaneous
  Country: US (occurrence: US)
  Receive Date: 20220607
  Receipt Date: 20230605
  Transmission Date: 20230722
  Serious: No
  Sender: FDA-Public Use
  Company Number: US-PHARMAESSENTIA CORPORATION-US-2022-PEC-000593

PATIENT

DRUGS (14)
  1. BESREMI [Suspect]
     Active Substance: ROPEGINTERFERON ALFA-2B-NJFT
     Indication: Polycythaemia vera
     Dosage: 50 MCG, Q2W
     Route: 058
     Dates: start: 20220412
  2. BESREMI [Suspect]
     Active Substance: ROPEGINTERFERON ALFA-2B-NJFT
     Dosage: UNK
     Route: 058
  3. BESREMI [Suspect]
     Active Substance: ROPEGINTERFERON ALFA-2B-NJFT
     Dosage: UNK
     Route: 058
  4. BESREMI [Suspect]
     Active Substance: ROPEGINTERFERON ALFA-2B-NJFT
     Dosage: 250 MCG
     Route: 058
     Dates: start: 202210
  5. BESREMI [Suspect]
     Active Substance: ROPEGINTERFERON ALFA-2B-NJFT
     Dosage: 200 MCG
     Route: 065
  6. BESREMI [Suspect]
     Active Substance: ROPEGINTERFERON ALFA-2B-NJFT
     Dosage: 250 MCG, Q2W
     Route: 058
     Dates: start: 20221220
  7. BESREMI [Suspect]
     Active Substance: ROPEGINTERFERON ALFA-2B-NJFT
     Dosage: UNK
     Route: 065
  8. FERROUS SULFATE [Suspect]
     Active Substance: FERROUS SULFATE
     Indication: Anaemia
     Route: 065
  9. CLARITIN [Concomitant]
     Active Substance: LORATADINE
     Indication: Cough
     Route: 065
  10. CLARITIN [Concomitant]
     Active Substance: LORATADINE
     Indication: Asthma
  11. PROPRANOLOL HYDROCHLORIDE [Concomitant]
     Active Substance: PROPRANOLOL HYDROCHLORIDE
     Indication: Product used for unknown indication
     Route: 065
  12. HYDROXYUREA [Concomitant]
     Active Substance: HYDROXYUREA
     Indication: Product used for unknown indication
     Dosage: UNK UNK, WEEKLY
     Route: 065
  13. HYDROXYUREA [Concomitant]
     Active Substance: HYDROXYUREA
     Dosage: 500 MG, QOD
  14. ALBUTEROL [Concomitant]
     Active Substance: ALBUTEROL
     Indication: Asthma
     Dosage: UNK AS NEEDED
     Route: 065

REACTIONS (35)
  - Flatulence [Unknown]
  - Lymphocyte count decreased [Unknown]
  - Vitreous detachment [Unknown]
  - Neutrophil count increased [Unknown]
  - White blood cell count increased [Not Recovered/Not Resolved]
  - Tooth injury [Recovered/Resolved]
  - COVID-19 [Recovered/Resolved]
  - Abdominal discomfort [Unknown]
  - Platelet count increased [Unknown]
  - Feeling abnormal [Unknown]
  - Postmenopausal haemorrhage [Unknown]
  - Blood lactate dehydrogenase increased [Recovering/Resolving]
  - Reticulocyte count increased [Not Recovered/Not Resolved]
  - Product use issue [Unknown]
  - Musculoskeletal discomfort [Unknown]
  - Splenomegaly [Unknown]
  - Therapeutic product effect decreased [Unknown]
  - Somnolence [Unknown]
  - Anaemia [Not Recovered/Not Resolved]
  - Laboratory test abnormal [Unknown]
  - Eye pain [Unknown]
  - Fatigue [Not Recovered/Not Resolved]
  - Vomiting [Unknown]
  - Increased tendency to bruise [Recovering/Resolving]
  - Headache [Unknown]
  - Night sweats [Unknown]
  - Haematocrit decreased [Recovering/Resolving]
  - Red blood cell count decreased [Not Recovered/Not Resolved]
  - Haemoglobin decreased [Not Recovered/Not Resolved]
  - Hepatic enzyme increased [Not Recovered/Not Resolved]
  - Nausea [Not Recovered/Not Resolved]
  - Malaise [Not Recovered/Not Resolved]
  - Rash [Unknown]
  - Aspartate aminotransferase increased [Not Recovered/Not Resolved]
  - Urinary tract infection [Unknown]

NARRATIVE: CASE EVENT DATE: 20220401
